FAERS Safety Report 5157055-9 (Version None)
Quarter: 2006Q4

REPORT INFORMATION
  Report Type: 
  Country: None (occurrence: None)
  Receive Date: 20061127
  Receipt Date: 20051201
  Transmission Date: 20070319
  Serious: Yes (Hospitalization)
  Sender: FDA-Public Use
  Company Number: AU-ELI_LILLY_AND_COMPANY-AU200512000697

PATIENT
  Age: 42 Year
  Sex: Male
  Weight: 82 kg

DRUGS (18)
  1. OLANZAPINE [Suspect]
     Indication: BIPOLAR DISORDER
     Dosage: 10 MG, DAILY (1/D)
     Route: 048
     Dates: start: 20041218, end: 20041218
  2. OLANZAPINE [Suspect]
     Dosage: 20 MG, DAILY (1/D)
     Route: 048
     Dates: start: 20041219, end: 20041221
  3. OLANZAPINE [Suspect]
     Dosage: 30 MG, DAILY (1/D)
     Route: 048
     Dates: start: 20041222, end: 20041229
  4. OLANZAPINE [Suspect]
     Dosage: 40 MG, DAILY (1/D)
     Route: 048
     Dates: start: 20041230, end: 20041230
  5. OLANZAPINE [Suspect]
     Dosage: 30 MG, DAILY (1/D)
     Route: 048
     Dates: start: 20041231, end: 20050107
  6. OLANZAPINE [Suspect]
     Dosage: 10 MG, DAILY (1/D)
     Route: 048
     Dates: start: 20050624, end: 20050627
  7. OLANZAPINE [Suspect]
     Dosage: 15 MG, DAILY (1/D)
     Route: 048
     Dates: start: 20050628, end: 20050630
  8. OLANZAPINE [Suspect]
     Dosage: 20 MG, DAILY (1/D)
     Route: 048
     Dates: start: 20050701, end: 20050705
  9. OLANZAPINE [Suspect]
     Dosage: 5 MG, DAILY (1/D)
     Route: 048
     Dates: start: 20050706, end: 20050708
  10. OLANZAPINE [Suspect]
     Dosage: 10 MG, DAILY (1/D)
     Route: 048
     Dates: start: 20050709, end: 20050709
  11. OLANZAPINE [Suspect]
     Dosage: 5 MG, DAILY (1/D)
     Route: 048
     Dates: start: 20050710, end: 20050710
  12. LITHIUM CARBONATE [Concomitant]
     Dosage: 1000 MG, DAILY (1/D)
     Dates: start: 20050628, end: 20050717
  13. LITHIUM CARBONATE [Concomitant]
     Dosage: 1000 MG, EACH EVENING
  14. COGENTIN                                /UNK/ [Concomitant]
     Dosage: 2 MG, DAILY (1/D)
     Dates: start: 20050624, end: 20050705
  15. DIAZEPAM [Concomitant]
     Dosage: 10 MG, DAILY (1/D)
     Dates: start: 20050629, end: 20050629
  16. DIAZEPAM [Concomitant]
     Dosage: UNK, UNK
     Dates: start: 20050706
  17. TEMAZEPAM [Concomitant]
     Dosage: 20 MG, DAILY (1/D)
     Dates: start: 20050707, end: 20050707
  18. SALBUTAMOL [Concomitant]
     Indication: ASTHMA
     Dosage: UNK, AS NEEDED
     Route: 055

REACTIONS (7)
  - AGITATION [None]
  - BACTERAEMIA [None]
  - BALANCE DISORDER [None]
  - COORDINATION ABNORMAL [None]
  - IRRITABILITY [None]
  - PYREXIA [None]
  - TREMOR [None]
